FAERS Safety Report 9771900 (Version 3)
Quarter: 2014Q1

REPORT INFORMATION
  Report Type: Spontaneous
  Country: JP (occurrence: JP)
  Receive Date: 20131219
  Receipt Date: 20140128
  Transmission Date: 20141002
  Serious: Yes (Death, Disabling, Other)
  Sender: FDA-Public Use
  Company Number: JP-AMGEN-JPNSP2013088884

PATIENT
  Age: 84 Year
  Sex: Female

DRUGS (7)
  1. PRALIA [Suspect]
     Indication: OSTEOPOROSIS
     Dosage: 60 MG, UNK
     Route: 058
     Dates: start: 20131126
  2. RENIVACE [Concomitant]
     Route: 065
  3. WARFARIN [Concomitant]
     Route: 065
  4. ARICEPT [Concomitant]
     Route: 065
  5. DEPAKENE-R [Concomitant]
     Route: 065
  6. REBAMIPIDE [Concomitant]
     Route: 065
  7. VASOLAN                            /00014302/ [Concomitant]
     Route: 065

REACTIONS (2)
  - Oedema [Recovering/Resolving]
  - Death [Fatal]
